FAERS Safety Report 16787115 (Version 1)
Quarter: 2019Q3

REPORT INFORMATION
  Report Type: Spontaneous
  Country: US (occurrence: US)
  Receive Date: 20190909
  Receipt Date: 20190909
  Transmission Date: 20191005
  Serious: No
  Sender: FDA-Public Use
  Company Number: US-SA-2019SA245689

PATIENT
  Sex: Female

DRUGS (6)
  1. BIOTIN [Concomitant]
     Active Substance: BIOTIN
  2. CLONAZEPAM. [Concomitant]
     Active Substance: CLONAZEPAM
  3. DEXTRAMINE [Concomitant]
  4. DUPIXENT [Suspect]
     Active Substance: DUPILUMAB
     Indication: DERMATITIS ATOPIC
     Dosage: 300 MG, QOW
     Route: 058
     Dates: start: 20190301
  5. AMPHETAMINE [Concomitant]
     Active Substance: AMPHETAMINE
  6. BIMATOPROST. [Concomitant]
     Active Substance: BIMATOPROST

REACTIONS (1)
  - Rash [Not Recovered/Not Resolved]
